FAERS Safety Report 14324406 (Version 2)
Quarter: 2024Q2

REPORT INFORMATION
  Report Type: Spontaneous
  Country: US (occurrence: US)
  Receive Date: 20171226
  Receipt Date: 20240404
  Transmission Date: 20240716
  Serious: Yes (Other)
  Sender: FDA-Public Use
  Company Number: US-MLMSERVICE-20170328-0472670-1

PATIENT
  Age: 33 Year
  Sex: Female

DRUGS (9)
  1. ENTACAPONE [Suspect]
     Active Substance: ENTACAPONE
     Indication: Parkinsonism
     Dosage: UNK 9 MONTHS
     Route: 065
  2. ENTACAPONE [Suspect]
     Active Substance: ENTACAPONE
     Indication: Gait disturbance
  3. ENTACAPONE [Suspect]
     Active Substance: ENTACAPONE
     Indication: Fall
  4. ROPINIROLE [Suspect]
     Active Substance: ROPINIROLE
     Indication: Parkinsonism
     Dosage: UNK 9 MONTHS
     Route: 065
  5. ROPINIROLE [Suspect]
     Active Substance: ROPINIROLE
     Indication: Fall
  6. ROPINIROLE [Suspect]
     Active Substance: ROPINIROLE
     Indication: Gait disturbance
  7. CARBIDOPA\LEVODOPA [Suspect]
     Active Substance: CARBIDOPA\LEVODOPA
     Indication: Parkinsonism
     Dosage: UNK 9 MONTHS
     Route: 065
  8. CARBIDOPA\LEVODOPA [Suspect]
     Active Substance: CARBIDOPA\LEVODOPA
     Indication: Gait disturbance
  9. CARBIDOPA\LEVODOPA [Suspect]
     Active Substance: CARBIDOPA\LEVODOPA
     Indication: Fall

REACTIONS (3)
  - Confusional state [Unknown]
  - Somnolence [Unknown]
  - Drug ineffective [Unknown]
